FAERS Safety Report 8880539 (Version 3)
Quarter: 2013Q1

REPORT INFORMATION
  Report Type: Spontaneous
  Country: US (occurrence: US)
  Receive Date: 20121031
  Receipt Date: 20130111
  Transmission Date: 20140127
  Serious: Yes (Death, Hospitalization)
  Sender: FDA-Public Use
  Company Number: US-GILEAD-2012-0063892

PATIENT
  Age: 57 Year
  Sex: Female

DRUGS (7)
  1. LETAIRIS [Suspect]
     Indication: PULMONARY HYPERTENSION
     Dosage: 5 MG, QD
     Route: 048
     Dates: start: 20081202
  2. LETAIRIS [Suspect]
     Indication: COR PULMONALE CHRONIC
  3. LETAIRIS [Suspect]
     Indication: SCLERODERMA
  4. LETAIRIS [Suspect]
     Indication: INTERSTITIAL LUNG DISEASE
  5. LETAIRIS [Suspect]
     Indication: CARDIAC FAILURE CHRONIC
  6. REMODULIN [Concomitant]
  7. REVATIO [Concomitant]

REACTIONS (6)
  - Death [Fatal]
  - Arrhythmia [Unknown]
  - Hypotension [Unknown]
  - Electrolyte imbalance [Unknown]
  - Anaemia [Unknown]
  - Dyspnoea [Unknown]
